FAERS Safety Report 9384022 (Version 1)
Quarter: 2013Q3

REPORT INFORMATION
  Report Type: Spontaneous
  Country: GB (occurrence: GB)
  Receive Date: 20130705
  Receipt Date: 20130705
  Transmission Date: 20140515
  Serious: Yes (Other)
  Sender: FDA-Public Use
  Company Number: GB-ROCHE-1245144

PATIENT
  Age: 43 Year
  Sex: Female
  Weight: 62.4 kg

DRUGS (5)
  1. CAPECITABINE [Suspect]
     Indication: PRODUCT USED FOR UNKNOWN INDICATION
     Route: 048
     Dates: start: 20130330
  2. CAPECITABINE [Suspect]
     Route: 048
     Dates: start: 201304, end: 20130524
  3. OXALIPLATIN [Suspect]
     Indication: PRODUCT USED FOR UNKNOWN INDICATION
     Route: 065
     Dates: start: 201303
  4. OXALIPLATIN [Suspect]
     Route: 065
     Dates: start: 201304
  5. METOCLOPRAMIDE [Concomitant]
     Route: 065

REACTIONS (3)
  - Blister [Unknown]
  - Rash [Recovered/Resolved]
  - Vomiting [Unknown]
